FAERS Safety Report 10330969 (Version 1)
Quarter: 2014Q3

REPORT INFORMATION
  Report Type: Spontaneous
  Country: US (occurrence: US)
  Receive Date: 20140722
  Receipt Date: 20140722
  Transmission Date: 20150326
  Serious: No
  Sender: FDA-Public Use
  Company Number: US-009507513-1407USA009279

PATIENT
  Age: 20 Year
  Sex: Female
  Weight: 54.42 kg

DRUGS (1)
  1. NEXPLANON [Suspect]
     Active Substance: ETONOGESTREL
     Indication: CONTRACEPTION
     Dosage: 1 ROD/3 YEARS, LEFT ARM
     Route: 059

REACTIONS (5)
  - Haemorrhage [Unknown]
  - Mood swings [Unknown]
  - Muscle spasms [Unknown]
  - Implant site pain [Unknown]
  - Depression [Unknown]

NARRATIVE: CASE EVENT DATE: 20140628
